FAERS Safety Report 6943046-1 (Version None)
Quarter: 2010Q3

REPORT INFORMATION
  Report Type: 
  Country: None (occurrence: None)
  Receive Date: 20100826
  Receipt Date: 20100818
  Transmission Date: 20110219
  Serious: Yes (Other)
  Sender: FDA-Public Use
  Company Number: CA-JNJFOC-20100303615

PATIENT
  Sex: Female
  Weight: 70 kg

DRUGS (3)
  1. REMICADE [Suspect]
     Indication: RHEUMATOID ARTHRITIS
     Route: 042
     Dates: start: 20070911, end: 20100114
  2. REMICADE [Suspect]
     Route: 042
     Dates: start: 20070911, end: 20100114
  3. METHOTREXATE [Concomitant]
     Route: 058

REACTIONS (2)
  - COUGH [None]
  - MEDICAL DEVICE COMPLICATION [None]
